FAERS Safety Report 9721567 (Version 1)
Quarter: 2013Q4

REPORT INFORMATION
  Report Type: Report from Study
  Country: BR (occurrence: BR)
  Receive Date: 20131130
  Receipt Date: 20131130
  Transmission Date: 20140711
  Serious: Yes (Other)
  Sender: FDA-Public Use
  Company Number: PHHY2013BR138818

PATIENT
  Sex: Male
  Weight: 65 kg

DRUGS (3)
  1. ACLASTA [Suspect]
     Indication: OSTEOPOROSIS
     Dosage: 5 MG, UNK
     Route: 042
     Dates: start: 2012
  2. DIOVAN [Concomitant]
     Dosage: UNK UKN, UNK
     Dates: start: 2009
  3. CETOCORT [Concomitant]
     Dosage: UNK UKN, UNK
     Dates: start: 2011

REACTIONS (2)
  - Pancreatic carcinoma [Unknown]
  - Gastritis [Unknown]
